FAERS Safety Report 16861149 (Version 2)
Quarter: 2019Q4

REPORT INFORMATION
  Report Type: Spontaneous
  Country: CA (occurrence: CA)
  Receive Date: 20190927
  Receipt Date: 20191127
  Transmission Date: 20200122
  Serious: Yes (Hospitalization, Other)
  Sender: FDA-Public Use
  Company Number: CA-GILEAD-2019-0430308

PATIENT
  Age: 71 Year
  Sex: Female

DRUGS (16)
  1. GRAVOL [Concomitant]
     Active Substance: DIMENHYDRINATE
  2. ONDANSETRON [Concomitant]
     Active Substance: ONDANSETRON
  3. PANTOPRAZOLE SODIUM. [Concomitant]
     Active Substance: PANTOPRAZOLE SODIUM
     Dosage: 40 MG, BID
     Route: 048
  4. SPIRONOLACTONE. [Concomitant]
     Active Substance: SPIRONOLACTONE
  5. TELMISARTAN. [Concomitant]
     Active Substance: TELMISARTAN
  6. BUDESONIDE;FORMOTEROL FUMARATE [Concomitant]
     Active Substance: BUDESONIDE\FORMOTEROL FUMARATE
  7. LACTULOSE. [Concomitant]
     Active Substance: LACTULOSE
  8. PARACETAMOL [Concomitant]
     Active Substance: ACETAMINOPHEN
  9. AMIODARONE [Suspect]
     Active Substance: AMIODARONE
     Indication: PRODUCT USED FOR UNKNOWN INDICATION
     Route: 065
  10. FUROSEMIDE. [Concomitant]
     Active Substance: FUROSEMIDE
  11. LASIX [Concomitant]
     Active Substance: FUROSEMIDE
  12. HARVONI [Suspect]
     Active Substance: LEDIPASVIR\SOFOSBUVIR
     Indication: HEPATITIS C
     Dosage: 1 DOSAGE FORM, QD
     Route: 048
  13. BISOPROLOL [Suspect]
     Active Substance: BISOPROLOL
     Indication: PRODUCT USED FOR UNKNOWN INDICATION
     Route: 065
  14. ASPIRIN [ACETYLSALICYLIC ACID] [Concomitant]
     Active Substance: ASPIRIN
  15. HALOPERIDOL. [Concomitant]
     Active Substance: HALOPERIDOL
  16. LEVOTHYROXINE SODIUM. [Concomitant]
     Active Substance: LEVOTHYROXINE SODIUM

REACTIONS (12)
  - Syncope [Unknown]
  - Blood potassium increased [Unknown]
  - Cerebrovascular accident [Unknown]
  - Hepatic function abnormal [Unknown]
  - Hypotension [Unknown]
  - Delirium [Unknown]
  - Hepatic encephalopathy [Unknown]
  - Bradycardia [Unknown]
  - Atrioventricular block complete [Unknown]
  - Renal impairment [Unknown]
  - Atrial fibrillation [Unknown]
  - Drug interaction [Unknown]
